FAERS Safety Report 19154010 (Version 2)
Quarter: 2021Q2

REPORT INFORMATION
  Report Type: Other
  Country: DE (occurrence: DE)
  Receive Date: 20210419
  Receipt Date: 20210531
  Transmission Date: 20210717
  Serious: Yes (Other)
  Sender: FDA-Public Use
  Company Number: DE-ROCHE-2810513

PATIENT

DRUGS (24)
  1. FLOXAL [Concomitant]
     Active Substance: OFLOXACIN
     Indication: PROPHYLAXIS
     Dosage: UNK (3 DROPS PER DAY) (BOTH EYES)
     Route: 061
     Dates: start: 20150824, end: 20150826
  2. PIPERACILLIN/TAZOBACTAM [Concomitant]
     Active Substance: PIPERACILLIN SODIUM\TAZOBACTAM SODIUM
     Indication: C-REACTIVE PROTEIN INCREASED
     Dosage: UNK
     Route: 042
     Dates: start: 20150830, end: 20150909
  3. KONAKION [Concomitant]
     Active Substance: PHYTONADIONE
     Dosage: UNK
     Route: 048
     Dates: start: 20151021
  4. VANCOMYCIN [Concomitant]
     Active Substance: VANCOMYCIN
  5. PERFALGAN [Concomitant]
     Active Substance: ACETAMINOPHEN
     Indication: PAIN PROPHYLAXIS
     Dosage: UNK
     Route: 042
     Dates: start: 20151014, end: 20151019
  6. FLOXAL [Concomitant]
     Active Substance: OFLOXACIN
     Dosage: UNK (3 DROPS PER DAY) (BOTH EYES)
     Route: 061
     Dates: start: 20151014, end: 20151016
  7. MEROPENEM. [Concomitant]
     Active Substance: MEROPENEM
     Indication: PROPHYLAXIS
     Dosage: UNK
     Route: 042
     Dates: start: 20151005, end: 20151014
  8. MULTIBIONTA [Concomitant]
     Active Substance: MINERALS\PROBIOTICS NOS\VITAMINS
     Indication: PROPHYLAXIS
     Dosage: UNK
     Route: 048
     Dates: start: 20151014, end: 20151019
  9. URSOFALK [Concomitant]
     Active Substance: URSODIOL
     Indication: CHOLESTASIS
     Dosage: UNK
     Route: 048
     Dates: start: 20150805
  10. PARACETAMOL [Concomitant]
     Active Substance: ACETAMINOPHEN
     Indication: PAIN MANAGEMENT
     Dosage: UNK
     Route: 042
     Dates: start: 20151002, end: 20151013
  11. PARACETAMOL [Concomitant]
     Active Substance: ACETAMINOPHEN
     Indication: PAIN
     Dosage: UNK
     Route: 042
     Dates: start: 20151223, end: 20151226
  12. ERYTHROMYCIN. [Concomitant]
     Active Substance: ERYTHROMYCIN
  13. LUMINAL [Concomitant]
     Active Substance: PHENOBARBITAL SODIUM
     Dosage: UNK
     Route: 042
     Dates: start: 20151014, end: 20151018
  14. MOVICOL [Concomitant]
     Active Substance: POLYETHYLENE GLYCOL 3350\POTASSIUM CHLORIDE\SODIUM BICARBONATE\SODIUM CHLORIDE
     Indication: PROPHYLAXIS
     Dosage: UNK
     Route: 048
     Dates: start: 20150831
  15. PIRITRAMIDE [Concomitant]
     Active Substance: PIRITRAMIDE
     Indication: PAIN MANAGEMENT
     Dosage: UNK
     Route: 042
     Dates: start: 20151001, end: 20151013
  16. MELATONIN [Concomitant]
     Active Substance: MELATONIN
     Indication: AGITATION
     Dosage: UNK
     Route: 048
     Dates: start: 20151028, end: 20160108
  17. LUCENTIS [Suspect]
     Active Substance: RANIBIZUMAB
     Indication: RETINOPATHY OF PREMATURITY
     Dosage: 0.20 MG ARM
     Route: 031
     Dates: start: 20150824
  18. LUMINAL [Concomitant]
     Active Substance: PHENOBARBITAL SODIUM
     Indication: AGITATION
     Dosage: UNK
     Route: 042
     Dates: start: 20150816, end: 20150825
  19. CHLORAL HYDRATE [Concomitant]
     Active Substance: CHLORAL HYDRATE
     Indication: SEDATION
     Dosage: UNK
     Route: 042
     Dates: start: 20151223, end: 20151226
  20. KONAKION [Concomitant]
     Active Substance: PHYTONADIONE
     Indication: PROPHYLAXIS
     Dosage: UNK
     Route: 042
     Dates: start: 20150624, end: 20150824
  21. VIGANTOLETTEN [Concomitant]
     Active Substance: CHOLECALCIFEROL
     Indication: PROPHYLAXIS
     Dosage: UNK
     Route: 048
     Dates: start: 20150824
  22. RANITIC [Concomitant]
     Active Substance: RANITIDINE HYDROCHLORIDE
     Indication: PROPHYLAXIS
     Dosage: UNK
     Route: 042
     Dates: start: 20151002, end: 20151008
  23. PIPERACILLIN. [Concomitant]
     Active Substance: PIPERACILLIN SODIUM
     Indication: PORTAL VENOUS SYSTEM ANOMALY
     Dosage: UNK
     Route: 042
     Dates: start: 20151120, end: 20151210
  24. INFLORAN [Concomitant]
     Indication: PROPHYLAXIS
     Dosage: UNK
     Route: 048
     Dates: start: 20151210, end: 20151210

REACTIONS (2)
  - Disease progression [Unknown]
  - Retinopathy of prematurity [Unknown]
